FAERS Safety Report 14695482 (Version 9)
Quarter: 2020Q3

REPORT INFORMATION
  Report Type: Report from Study
  Country: TH (occurrence: TH)
  Receive Date: 20180329
  Receipt Date: 20190627
  Transmission Date: 20201104
  Serious: Yes (Disabling, Other)
  Sender: FDA-Public Use
  Company Number: PHHO2018TH004086

PATIENT
  Age: 48 Year
  Sex: Female
  Weight: 75 kg

DRUGS (9)
  1. TRAMETINIB [Suspect]
     Active Substance: TRAMETINIB
     Indication: METASTATIC MALIGNANT MELANOMA
     Dosage: 2 MG, QD
     Route: 048
     Dates: start: 20180221, end: 20180319
  2. TEARS NATURAL FREE [Concomitant]
     Indication: DRY EYE
     Dosage: 1 DRP, QID
     Route: 047
     Dates: start: 20170612
  3. DICLOFENAC [Concomitant]
     Active Substance: DICLOFENAC
     Indication: NECK PAIN
     Dosage: 25 MG, TID
     Route: 048
     Dates: start: 20180123
  4. SIMVASTATIN. [Concomitant]
     Active Substance: SIMVASTATIN
     Indication: DYSLIPIDAEMIA
     Dosage: 10 MG, QD
     Route: 048
     Dates: start: 20151115
  5. DABRAFENIB [Suspect]
     Active Substance: DABRAFENIB
     Indication: METASTATIC MALIGNANT MELANOMA
     Dosage: 150 MG, BID
     Route: 048
     Dates: start: 20180221, end: 20180319
  6. VIDISIC [Concomitant]
     Indication: DRY EYE
     Dosage: 10 G, QD
     Route: 047
     Dates: start: 20180123
  7. AMLODIPINE [Concomitant]
     Active Substance: AMLODIPINE BESYLATE
     Indication: HYPERTENSION
     Dosage: 5 MG, QD
     Route: 048
     Dates: start: 20151115
  8. OMEPRAZOLE. [Concomitant]
     Active Substance: OMEPRAZOLE
     Indication: PROPHYLAXIS
     Dosage: 20 MG, QD
     Route: 048
     Dates: start: 20180123
  9. PDR001 [Suspect]
     Active Substance: SPARTALIZUMAB
     Indication: METASTATIC MALIGNANT MELANOMA
     Dosage: 400 MG, Q4W
     Route: 042
     Dates: start: 20180221, end: 20180221

REACTIONS (2)
  - Angle closure glaucoma [Recovered/Resolved]
  - Retinal detachment [Recovered/Resolved with Sequelae]

NARRATIVE: CASE EVENT DATE: 20180308
